FAERS Safety Report 5697000-0 (Version None)
Quarter: 2008Q2

REPORT INFORMATION
  Report Type: 
  Country: None (occurrence: None)
  Receive Date: 20080408
  Receipt Date: 20070316
  Transmission Date: 20081010
  Serious: No
  Sender: FDA-Public Use
  Company Number: US-BAYER-US-2007-009634

PATIENT
  Age: 18 Year
  Sex: Female
  Weight: 52 kg

DRUGS (2)
  1. YASMIN [Suspect]
     Indication: PREMENSTRUAL SYNDROME
     Route: 048
     Dates: start: 20040801
  2. MOTRIN [Concomitant]
     Indication: PAIN
     Route: 048
     Dates: start: 20060301

REACTIONS (2)
  - METRORRHAGIA [None]
  - PAIN [None]
